FAERS Safety Report 14327436 (Version 6)
Quarter: 2018Q1

REPORT INFORMATION
  Report Type: Report from Study
  Country: PL (occurrence: PL)
  Receive Date: 20171227
  Receipt Date: 20180220
  Transmission Date: 20180509
  Serious: Yes (Hospitalization)
  Sender: FDA-Public Use
  Company Number: PL-ROCHE-2019979

PATIENT
  Age: 72 Year
  Sex: Female
  Weight: 80 kg

DRUGS (25)
  1. DEXAMETHASONE. [Concomitant]
     Active Substance: DEXAMETHASONE
     Route: 065
     Dates: start: 20171123, end: 20171123
  2. CLOBETASOLI PROPIONAS [Concomitant]
     Indication: DERMATITIS ATOPIC
     Route: 065
     Dates: start: 201704
  3. ATORVASTATINUM [Concomitant]
     Indication: HYPERTENSION
     Route: 065
     Dates: start: 20171027
  4. CLEMASTINUM [Concomitant]
     Active Substance: CLEMASTINE FUMARATE
     Route: 065
     Dates: start: 20180105, end: 20180105
  5. TRASTUZUMAB. [Suspect]
     Active Substance: TRASTUZUMAB
     Indication: HER-2 POSITIVE BREAST CANCER
     Dosage: MOST RECENT DOSE PRIOR TO SERIOUS ADVERSE EVENT: 12/OCT/2017.
     Route: 058
     Dates: start: 20160801
  6. PERTUZUMAB. [Suspect]
     Active Substance: PERTUZUMAB
     Dosage: FIRST DOSE (AS PER PROTOCOL)
     Route: 042
     Dates: start: 20160801
  7. LEVOTHYROXINUM NATRICUM [Concomitant]
     Route: 065
     Dates: start: 20171027
  8. BISOPROLOL [Concomitant]
     Active Substance: BISOPROLOL
     Indication: HYPERTENSION
     Route: 065
     Dates: start: 2005, end: 20171015
  9. BISOPROLOL [Concomitant]
     Active Substance: BISOPROLOL
     Route: 065
     Dates: start: 20171016
  10. PERINDOPRILUM [Concomitant]
     Indication: HYPERTENSION
     Route: 065
     Dates: start: 2005, end: 20171027
  11. INDAPAMIDUM [Concomitant]
     Indication: HYPERTENSION
     Route: 065
     Dates: start: 2005, end: 20171027
  12. MAGNEZIN (POLAND) [Concomitant]
     Indication: HYPERTENSION
     Route: 065
     Dates: start: 20171027
  13. LEVOTHYROXINUM NATRICUM [Concomitant]
     Indication: HYPOTHYROIDISM
     Route: 065
     Dates: start: 1995, end: 20171027
  14. BISOCARD [Concomitant]
     Active Substance: BISOPROLOL
     Route: 065
     Dates: start: 20171016
  15. CLOPIDOGRELUM [Concomitant]
     Indication: HYPERTENSION
     Route: 065
     Dates: start: 20171027
  16. RAMIPRILUM [Concomitant]
     Indication: HYPERTENSION
     Route: 065
     Dates: start: 20171027
  17. CLEMASTINUM [Concomitant]
     Active Substance: CLEMASTINE FUMARATE
     Indication: PREMEDICATION
     Route: 065
     Dates: start: 20171102, end: 20171102
  18. CLEMASTINUM [Concomitant]
     Active Substance: CLEMASTINE FUMARATE
     Route: 065
     Dates: start: 20171214, end: 20171214
  19. DEXAMETHASONE. [Concomitant]
     Active Substance: DEXAMETHASONE
     Indication: PREMEDICATION
     Route: 065
     Dates: start: 20171102, end: 20171102
  20. DOCETAXEL. [Suspect]
     Active Substance: DOCETAXEL
     Indication: HER-2 POSITIVE BREAST CANCER
     Route: 042
     Dates: start: 20160801
  21. CLEMASTINUM [Concomitant]
     Active Substance: CLEMASTINE FUMARATE
     Route: 065
     Dates: start: 20171123, end: 20171123
  22. DEXAMETHASONE. [Concomitant]
     Active Substance: DEXAMETHASONE
     Route: 065
     Dates: start: 20171214, end: 20171214
  23. PERTUZUMAB. [Suspect]
     Active Substance: PERTUZUMAB
     Indication: HER-2 POSITIVE BREAST CANCER
     Dosage: MOST RECENT DOSE PRIOR TO SERIOUS ADVERSE EVENT: 12/OCT/2017.
     Route: 042
  24. ENOXAPARINUM NATRICUM [Concomitant]
     Dosage: FOR PHLEBITIS PROPHILAXIS
     Route: 065
     Dates: start: 20160904
  25. DEXAMETHASONE. [Concomitant]
     Active Substance: DEXAMETHASONE
     Route: 065
     Dates: start: 20180105, end: 20180105

REACTIONS (1)
  - Coronary artery disease [Not Recovered/Not Resolved]

NARRATIVE: CASE EVENT DATE: 20171014
